FAERS Safety Report 4322228-1 (Version None)
Quarter: 2004Q1

REPORT INFORMATION
  Report Type: 
  Country: None (occurrence: None)
  Receive Date: 20040323
  Receipt Date: 20040309
  Transmission Date: 20041129
  Serious: Yes (Hospitalization)
  Sender: FDA-Public Use
  Company Number: 2004016209

PATIENT
  Age: 2 Year
  Sex: Female
  Weight: 13.1543 kg

DRUGS (1)
  1. VISINE EYE DROPS [Suspect]
     Indication: ACCIDENTAL EXPOSURE
     Dosage: 1/2 TSP ONCE, ORAL
     Route: 048
     Dates: start: 20040305, end: 20040306

REACTIONS (6)
  - ACCIDENTAL EXPOSURE [None]
  - DYSPNOEA [None]
  - HEART RATE INCREASED [None]
  - LETHARGY [None]
  - LOSS OF CONSCIOUSNESS [None]
  - VOMITING [None]
